FAERS Safety Report 4868144-8 (Version None)
Quarter: 2005Q4

REPORT INFORMATION
  Report Type: 
  Country: None (occurrence: None)
  Receive Date: 20051229
  Receipt Date: 20051214
  Transmission Date: 20060501
  Serious: Yes (Other)
  Sender: FDA-Public Use
  Company Number: PHEH2005US13490

PATIENT
  Age: 78 Year
  Sex: Male

DRUGS (4)
  1. ZOMETA [Suspect]
     Indication: PROSTATE CANCER
     Dosage: 4MG QMO
     Dates: start: 20050309, end: 20051001
  2. PREDNISONE 50MG TAB [Concomitant]
     Indication: PROSTATE CANCER
     Dosage: 10MG QD
     Dates: start: 20050526
  3. DEXAMETHASONE [Concomitant]
     Dosage: 4MG Q12H 1HR PRECHEM + 12H POST
     Dates: start: 20050526
  4. TAXOTERE [Concomitant]

REACTIONS (1)
  - OSTEONECROSIS [None]
